FAERS Safety Report 5336956-2 (Version None)
Quarter: 2007Q2

REPORT INFORMATION
  Report Type: 
  Country: None (occurrence: None)
  Receive Date: 20070529
  Receipt Date: 20070514
  Transmission Date: 20071010
  Serious: Yes (Hospitalization)
  Sender: FDA-Public Use
  Company Number: GB-ROCHE-497339

PATIENT
  Age: 37 Year
  Sex: Female
  Weight: 60 kg

DRUGS (2)
  1. CAPECITABINE [Suspect]
     Indication: BREAST CANCER
     Dosage: DOSE GIVEN TWICE DAILY FOR DAYS 1-14 OF 3 WEEK CYCLE
     Route: 048
     Dates: start: 20070423
  2. EPIRUBICIN [Suspect]
     Indication: BREAST CANCER
     Dosage: DOSE GIVEN FOR 4 CYCLES
     Route: 042
     Dates: start: 20070223

REACTIONS (1)
  - ARTERIOSPASM CORONARY [None]
